FAERS Safety Report 7744294-3 (Version None)
Quarter: 2011Q3

REPORT INFORMATION
  Report Type: 
  Country: None (occurrence: None)
  Receive Date: 20110908
  Receipt Date: 20110831
  Transmission Date: 20111222
  Serious: Yes (Other)
  Sender: FDA-Public Use
  Company Number: TPA2011A05278

PATIENT
  Age: 60 Year
  Sex: Male

DRUGS (4)
  1. LISINOPRIL [Concomitant]
  2. ACTOS [Suspect]
     Indication: TYPE 2 DIABETES MELLITUS
     Dosage: 45 MG, 1 IN 1 D, PER ORAL, 5-6 YEARS
     Route: 048
  3. HYDROCHLOROTHIAZIDE [Concomitant]
  4. LOVASTATIN [Concomitant]

REACTIONS (3)
  - RENAL CANCER [None]
  - HAEMATURIA [None]
  - BLADDER CANCER [None]
